FAERS Safety Report 8965722 (Version 2)
Quarter: 2013Q1

REPORT INFORMATION
  Report Type: Spontaneous
  Country: CA (occurrence: None)
  Receive Date: 20121206
  Receipt Date: 20130115
  Transmission Date: 20140127
  Serious: Yes (Hospitalization, Other)
  Sender: FDA-Public Use
  Company Number: 2012-004238

PATIENT
  Age: 70 Year
  Sex: Female

DRUGS (22)
  1. ACTONEL [Suspect]
     Indication: OSTEOPOROSIS
     Route: 048
     Dates: start: 2010, end: 20121128
  2. PREDNISONE (PREDNISONE) [Suspect]
     Dates: start: 2012, end: 2012
  3. POTASSIUM CHLORIDE (POTASSIUM CHLORIDE) [Concomitant]
  4. BISOPROLOL FUMARATE (BISOPROLOL FUMARATE) [Concomitant]
  5. CLONAZEPAM (CLONAZEPAM) (CLONAZEPAM) [Concomitant]
  6. LIPITOR (ATORVASTATIN CALCIUM) [Concomitant]
  7. APO-NORTRIPTYLINE (NORTRIPTYLINE HYDROCHLORIDE) [Concomitant]
  8. RISPERDAL (RISPERIDONE) [Concomitant]
  9. APO-DIVALPROEX (VALPROATE SEMISODIUM) [Concomitant]
  10. SPIRIVA (TIOTROPIUM BROMIDE) [Concomitant]
  11. PULMICORT TURBUHALER (BUDESONIDE) [Concomitant]
  12. LASIX /00032601/ (FUROSEMIDE) UNK, UNKUNK [Concomitant]
  13. APO-ZOPICLONE (ZOPICLONE) [Concomitant]
  14. RAMIPRIL (RAMIPRIL) [Concomitant]
  15. VENTOLIN /00139501/ (SALBUTAMOL) [Concomitant]
  16. TOPICORT /00370301/ (DESOXIMETASONE) [Concomitant]
  17. NITROGLYCERIN (GLYCERYL TRINITRATE) [Concomitant]
  18. ASA (ACETYLSALICYLIC ACID) [Concomitant]
  19. ARTHROTEC (DICLOFENAC SODIUM, MISOPROSTOL) [Concomitant]
  20. HYDROMORPHONE HCL (HYDROMORPHONE HYDROCHLORIDE) [Concomitant]
  21. GABAPENTIN (GABAPENTIN) [Concomitant]
  22. ESOMEPRAZOLE MAGNESIUM (ESOMEPRAZOLE MAGNESIUM) [Concomitant]

REACTIONS (5)
  - Osteonecrosis [None]
  - Acetabulum fracture [None]
  - Comminuted fracture [None]
  - Arthralgia [None]
  - Groin pain [None]
